FAERS Safety Report 18885100 (Version 1)
Quarter: 2021Q1

REPORT INFORMATION
  Report Type: Spontaneous
  Country: US (occurrence: US)
  Receive Date: 20210212
  Receipt Date: 20210212
  Transmission Date: 20210420
  Serious: Yes (Other)
  Sender: FDA-Public Use
  Company Number: None

PATIENT
  Age: 73 Year
  Sex: Male

DRUGS (1)
  1. BAMLANIVIMAB 700MG [Suspect]
     Active Substance: BAMLANIVIMAB
     Indication: COVID-19
     Dosage: ?          OTHER ROUTE:IV?
     Dates: start: 20210203

REACTIONS (4)
  - Pneumonia [None]
  - Unresponsive to stimuli [None]
  - Urinary incontinence [None]
  - Confusional state [None]

NARRATIVE: CASE EVENT DATE: 20210203
